FAERS Safety Report 21137427 (Version 1)
Quarter: 2022Q3

REPORT INFORMATION
  Report Type: Spontaneous
  Country: US (occurrence: US)
  Receive Date: 20220727
  Receipt Date: 20220727
  Transmission Date: 20221026
  Serious: Yes (Other)
  Sender: FDA-Public Use
  Company Number: US-VELOXIS PHARMACEUTICALS-2021VELUS-000665

PATIENT
  Age: 59 Year
  Sex: Male

DRUGS (1)
  1. ENVARSUS XR [Suspect]
     Active Substance: TACROLIMUS
     Indication: Prophylaxis against transplant rejection
     Dosage: 6 MILLIGRAM, QD (4 MG TABLET PLUS TWO 1 MG TABLETS)
     Route: 048
     Dates: start: 202012

REACTIONS (2)
  - Diabetes mellitus [Recovered/Resolved]
  - Off label use [Unknown]
